FAERS Safety Report 17681589 (Version 1)
Quarter: 2020Q2

REPORT INFORMATION
  Report Type: Spontaneous
  Country: US (occurrence: US)
  Receive Date: 20200417
  Receipt Date: 20200417
  Transmission Date: 20200714
  Serious: Yes (Death)
  Sender: FDA-Public Use
  Company Number: US-MALLINCKRODT-T202001807

PATIENT

DRUGS (1)
  1. UVADEX [Suspect]
     Active Substance: METHOXSALEN
     Indication: ACUTE GRAFT VERSUS HOST DISEASE
     Dosage: UNK, EXTRACORPOREAL
     Route: 050

REACTIONS (7)
  - Death [Fatal]
  - Anaemia [Unknown]
  - Hypocalcaemia [Unknown]
  - Product use in unapproved indication [Unknown]
  - Hypertension [Unknown]
  - Therapy partial responder [Unknown]
  - Nausea [Unknown]
